FAERS Safety Report 8437626-4 (Version None)
Quarter: 2012Q2

REPORT INFORMATION
  Report Type: 
  Country: None (occurrence: None)
  Receive Date: 20120614
  Receipt Date: 20120427
  Transmission Date: 20120825
  Serious: No
  Sender: FDA-Public Use
  Company Number: US-AMGEN-USASP2012026786

PATIENT
  Age: 94 Year
  Sex: Female

DRUGS (7)
  1. OXCARBAZEPINE [Concomitant]
  2. AMLODIPINE [Concomitant]
  3. ATENOLOL [Concomitant]
  4. ASPIRIN [Concomitant]
  5. VITAMIN D [Concomitant]
  6. CALCIUM [Concomitant]
  7. PROLIA [Suspect]
     Indication: OSTEOPOROSIS POSTMENOPAUSAL
     Dosage: 60 MG, Q6MO
     Dates: start: 20120411

REACTIONS (4)
  - PRURITUS [None]
  - DRY SKIN [None]
  - BURNING SENSATION [None]
  - SWELLING FACE [None]
